FAERS Safety Report 10624625 (Version 1)
Quarter: 2014Q4

REPORT INFORMATION
  Report Type: Report from Study
  Country: BR (occurrence: BR)
  Receive Date: 20141203
  Receipt Date: 20141203
  Transmission Date: 20150529
  Serious: Yes (Other)
  Sender: FDA-Public Use
  Company Number: BR-ABBVIE-14K-020-1314574-00

PATIENT
  Sex: Male
  Weight: 65 kg

DRUGS (2)
  1. INDOCID [Concomitant]
     Active Substance: INDOMETHACIN
     Indication: PAIN
     Route: 048
  2. HUMIRA [Suspect]
     Active Substance: ADALIMUMAB
     Indication: ANKYLOSING SPONDYLITIS
     Route: 058
     Dates: start: 2012, end: 2012

REACTIONS (1)
  - Arthropathy [Recovered/Resolved]
